FAERS Safety Report 7443599-3 (Version None)
Quarter: 2011Q2

REPORT INFORMATION
  Report Type: 
  Country: None (occurrence: None)
  Receive Date: 20110428
  Receipt Date: 20110426
  Transmission Date: 20111010
  Serious: Yes (Death, Disabling, Other)
  Sender: FDA-Public Use
  Company Number: US-CELGENEUS-163-21880-11021638

PATIENT
  Sex: Female
  Weight: 48.1 kg

DRUGS (6)
  1. GABAPENTIN [Concomitant]
     Dosage: 100 MILLIGRAM
     Route: 065
  2. REVLIMID [Suspect]
     Indication: MULTIPLE MYELOMA
     Dosage: 10 MILLIGRAM
     Route: 048
     Dates: start: 20100721, end: 20110101
  3. OXYCODONE HCL [Concomitant]
     Indication: PAIN
     Dosage: 15 MILLIGRAM
     Route: 065
  4. DECADRON [Concomitant]
     Indication: MULTIPLE MYELOMA
     Dosage: 40 MILLIGRAM
     Route: 065
  5. AREDIA [Concomitant]
     Route: 065
  6. FENTANYL [Concomitant]
     Indication: PAIN
     Dosage: 50 MILLIGRAM
     Route: 065

REACTIONS (5)
  - MULTIPLE MYELOMA [None]
  - CARDIAC FAILURE CONGESTIVE [None]
  - PNEUMONIA [None]
  - HYPERCALCAEMIA [None]
  - CHRONIC OBSTRUCTIVE PULMONARY DISEASE [None]
